FAERS Safety Report 12376823 (Version 1)
Quarter: 2016Q2

REPORT INFORMATION
  Report Type: Spontaneous
  Country: US (occurrence: US)
  Receive Date: 20160517
  Receipt Date: 20160517
  Transmission Date: 20160815
  Serious: No
  Sender: FDA-Public Use
  Company Number: US-TAKEDA-2016TUS008198

PATIENT
  Age: 74 Year
  Sex: Female
  Weight: 72.56 kg

DRUGS (4)
  1. TRINTELLIX [Suspect]
     Active Substance: VORTIOXETINE HYDROBROMIDE
     Dosage: UNK, QOD
     Route: 048
     Dates: start: 2015, end: 201602
  2. TRINTELLIX [Suspect]
     Active Substance: VORTIOXETINE HYDROBROMIDE
     Dosage: 10 MG, QOD
     Route: 048
     Dates: start: 2015, end: 2015
  3. TRINTELLIX [Suspect]
     Active Substance: VORTIOXETINE HYDROBROMIDE
     Dosage: UNK
     Route: 048
     Dates: start: 201602
  4. TRINTELLIX [Suspect]
     Active Substance: VORTIOXETINE HYDROBROMIDE
     Indication: DEPRESSION
     Dosage: 10 MG, QD
     Route: 048
     Dates: start: 2015, end: 2015

REACTIONS (6)
  - Wrong technique in product usage process [Not Recovered/Not Resolved]
  - Diarrhoea [Recovered/Resolved]
  - Irritable bowel syndrome [Recovered/Resolved]
  - Anal incontinence [Recovered/Resolved]
  - Nausea [Recovered/Resolved]
  - Pyrexia [Recovered/Resolved]

NARRATIVE: CASE EVENT DATE: 2015
